APPROVED DRUG PRODUCT: PYLORI-CHEK BREATH TEST
Active Ingredient: UREA C-13
Strength: 100MG/VIAL
Dosage Form/Route: FOR SOLUTION;ORAL
Application: N020900 | Product #001
Applicant: DIAGNOSTICS AND DEVICES INC
Approved: Feb 4, 1999 | RLD: No | RS: No | Type: DISCN